FAERS Safety Report 8550846-3 (Version None)
Quarter: 2012Q3

REPORT INFORMATION
  Report Type: 
  Country: None (occurrence: None)
  Receive Date: 20120730
  Receipt Date: 20110714
  Transmission Date: 20120928
  Serious: No
  Sender: FDA-Public Use
  Company Number: US-ALLERGAN-1109535US

PATIENT
  Sex: Female

DRUGS (2)
  1. LUMIGAN [Suspect]
     Indication: PRODUCT USED FOR UNKNOWN INDICATION
     Dosage: 1 GTT, QHS
     Route: 047
     Dates: start: 20110601
  2. CLEAR EYES                         /00419602/ [Concomitant]
     Indication: OCULAR HYPERAEMIA

REACTIONS (3)
  - OCULAR HYPERAEMIA [None]
  - EYE PRURITUS [None]
  - EYE IRRITATION [None]
